FAERS Safety Report 17463182 (Version 1)
Quarter: 2020Q1

REPORT INFORMATION
  Report Type: Spontaneous
  Country: US (occurrence: US)
  Receive Date: 20200213
  Receipt Date: 20200213
  Transmission Date: 20200409
  Serious: Yes (Life-Threatening)
  Sender: FDA-Public Use
  Company Number: None

PATIENT
  Age: 60 Year
  Sex: Male
  Weight: 120 kg

DRUGS (1)
  1. CEFAZOLIN (CEFAZOLIN NA 1GM/VIL INJ) [Suspect]
     Active Substance: CEFAZOLIN
     Indication: CARDIOVASCULAR DISORDER
     Route: 042
     Dates: start: 20191204, end: 20191204

REACTIONS (2)
  - Anaphylactic reaction [None]
  - Respiratory depression [None]

NARRATIVE: CASE EVENT DATE: 20191204
